FAERS Safety Report 20063998 (Version 11)
Quarter: 2022Q3

REPORT INFORMATION
  Report Type: Spontaneous
  Country: CZ (occurrence: CZ)
  Receive Date: 20211112
  Receipt Date: 20220706
  Transmission Date: 20221027
  Serious: Yes (Hospitalization, Disabling, Other)
  Sender: FDA-Public Use
  Company Number: CZ-NOVARTISPH-NVSC2021CZ247465

PATIENT
  Age: 41 Year
  Sex: Male

DRUGS (8)
  1. TAMSULOSIN HYDROCHLORIDE [Suspect]
     Active Substance: TAMSULOSIN HYDROCHLORIDE
     Indication: Nephrolithiasis
     Dosage: 0.4 MG, ONCE DAILY, (0-0-1)
     Route: 048
  2. TAMSULOSIN HYDROCHLORIDE [Suspect]
     Active Substance: TAMSULOSIN HYDROCHLORIDE
     Indication: Ureterolithiasis
  3. TAMSULOSIN HYDROCHLORIDE [Suspect]
     Active Substance: TAMSULOSIN HYDROCHLORIDE
     Indication: Renal stone removal
  4. AMISULPRIDE [Suspect]
     Active Substance: AMISULPRIDE
     Indication: Schizophrenia
     Dosage: 200 MG, QD (0-0-1) (CHRONICALLY USED AMISULPRIDE, BUT PATIENT TOLERATED IT FOR AT LEAST 10 YEARS)
     Route: 065
  5. DICLOFENAC [Concomitant]
     Active Substance: DICLOFENAC
     Indication: Pain
     Dosage: 50 MG, THRICE DAILY (1-1-1)
     Route: 065
  6. FELODIPINE [Concomitant]
     Active Substance: FELODIPINE
     Indication: Product used for unknown indication
     Dosage: 5 MG, ONCE DAILY (1-0-0)
     Route: 065
  7. METAMIZOLE;PITOFENONE [Concomitant]
     Indication: Pain
     Dosage: 30 DRP, Q8H (30-30-30 GTT, THRICE DAILY)(0.33 PER DAY)
     Route: 065
  8. METAMIZOLE;PITOFENONE [Concomitant]
     Dosage: 30 DRP, PRN
     Route: 065

REACTIONS (2)
  - Priapism [Recovered/Resolved with Sequelae]
  - Product use in unapproved indication [Unknown]
